FAERS Safety Report 5679664-0 (Version None)
Quarter: 2008Q1

REPORT INFORMATION
  Report Type: 
  Country: None (occurrence: None)
  Receive Date: 20080324
  Receipt Date: 20080314
  Transmission Date: 20080703
  Serious: Yes (Other)
  Sender: FDA-Public Use
  Company Number: 163-21880-08031079

PATIENT

DRUGS (4)
  1. REVLIMID [Suspect]
     Indication: NEOPLASM
     Dosage: 5MG-40MG, 21 DAYS ON, 7 DAYS OFF, ORAL
     Route: 048
  2. REVLIMID [Suspect]
     Indication: PROSTATE CANCER
     Dosage: 5MG-40MG, 21 DAYS ON, 7 DAYS OFF, ORAL
     Route: 048
  3. KETOCONAZOLE [Suspect]
     Indication: PROSTATE CANCER
  4. HYDROCORTISONE [Suspect]
     Indication: PROSTATE CANCER

REACTIONS (3)
  - ARRHYTHMIA [None]
  - HAEMOLYSIS [None]
  - NEUTROPENIA [None]
